FAERS Safety Report 14649681 (Version 3)
Quarter: 2018Q2

REPORT INFORMATION
  Report Type: Spontaneous
  Country: US (occurrence: US)
  Receive Date: 20180316
  Receipt Date: 20180604
  Transmission Date: 20180711
  Serious: Yes (Other)
  Sender: FDA-Public Use
  Company Number: US-PFIZER INC-2018108545

PATIENT
  Age: 26 Year
  Sex: Male

DRUGS (3)
  1. CHANTIX [Suspect]
     Active Substance: VARENICLINE TARTRATE
     Indication: SMOKING CESSATION THERAPY
     Dosage: UNK
     Route: 048
  2. PREDNISONE. [Concomitant]
     Active Substance: PREDNISONE
     Indication: BRONCHITIS
     Dosage: UNK
     Dates: start: 20180216, end: 20180220
  3. VENTOLIN [Concomitant]
     Active Substance: ALBUTEROL SULFATE
     Indication: BRONCHITIS
     Dosage: UNK, AS NEEDED
     Dates: start: 20180216

REACTIONS (20)
  - Abnormal behaviour [Unknown]
  - Drug screen positive [Unknown]
  - Mean platelet volume increased [Unknown]
  - Screaming [Unknown]
  - Blood glucose increased [Unknown]
  - Lymphocyte count decreased [Unknown]
  - Altered state of consciousness [Unknown]
  - Aggression [Unknown]
  - Leukocytosis [Unknown]
  - Mean cell haemoglobin decreased [Unknown]
  - Carbon dioxide decreased [Unknown]
  - Suicidal ideation [Unknown]
  - Haemoglobin decreased [Unknown]
  - Haematocrit decreased [Unknown]
  - Drug abuse [Unknown]
  - Psychotic disorder [Unknown]
  - Heart rate increased [Unknown]
  - Aspartate aminotransferase increased [Unknown]
  - Hypokalaemia [Unknown]
  - Mean cell volume decreased [Unknown]

NARRATIVE: CASE EVENT DATE: 20180307
